FAERS Safety Report 7278272-8 (Version None)
Quarter: 2011Q1

REPORT INFORMATION
  Report Type: 
  Country: None (occurrence: None)
  Receive Date: 20110131
  Receipt Date: 20110116
  Transmission Date: 20110831
  Serious: Yes (Death, Other)
  Sender: FDA-Public Use
  Company Number: 2011000277

PATIENT
  Age: 75 Year
  Sex: Male

DRUGS (3)
  1. VINORELBINE [Suspect]
     Indication: LUNG ADENOCARCINOMA STAGE IV
     Dates: start: 20100701
  2. TARCEVA [Suspect]
     Indication: LUNG ADENOCARCINOMA STAGE IV
     Dosage: ORAL
     Route: 048
     Dates: start: 20070501
  3. PEMETREXED [Suspect]
     Indication: LUNG ADENOCARCINOMA STAGE IV
     Dates: start: 20090401

REACTIONS (11)
  - RASH [None]
  - INFLUENZA [None]
  - HAEMOPTYSIS [None]
  - CHEST PAIN [None]
  - OEDEMA PERIPHERAL [None]
  - METASTASES TO BONE [None]
  - DYSPNOEA [None]
  - CHEST DISCOMFORT [None]
  - THROMBOCYTOPENIA [None]
  - PAIN [None]
  - COUGH [None]
